FAERS Safety Report 21921360 (Version 1)
Quarter: 2023Q1

REPORT INFORMATION
  Report Type: Spontaneous
  Country: RU (occurrence: RU)
  Receive Date: 20230127
  Receipt Date: 20230127
  Transmission Date: 20230417
  Serious: Yes (Life-Threatening, Hospitalization, Other)
  Sender: FDA-Public Use
  Company Number: RU-JNJFOC-20230137752

PATIENT
  Age: 24 Year
  Sex: Female

DRUGS (11)
  1. PALIPERIDONE PALMITATE [Suspect]
     Active Substance: PALIPERIDONE PALMITATE
     Indication: Schizoaffective disorder
     Route: 030
     Dates: start: 20220211
  2. PALIPERIDONE PALMITATE [Suspect]
     Active Substance: PALIPERIDONE PALMITATE
     Dosage: 1 WEEK LATER
     Route: 030
  3. PALIPERIDONE PALMITATE [Suspect]
     Active Substance: PALIPERIDONE PALMITATE
  4. QUETIAPINE [Suspect]
     Active Substance: QUETIAPINE
     Indication: Schizoaffective disorder
     Dosage: 25 MG, 1 TABLET BEFORE BED
     Route: 065
     Dates: end: 20220224
  5. HALOPERIDOL [Suspect]
     Active Substance: HALOPERIDOL
     Indication: Schizoaffective disorder
     Route: 065
  6. VALPROIC ACID [Suspect]
     Active Substance: VALPROIC ACID
     Indication: Schizoaffective disorder
     Route: 065
  7. CARBAMAZEPINE [Suspect]
     Active Substance: CARBAMAZEPINE
     Indication: Schizoaffective disorder
     Dosage: 3 TIMES A DAY.
     Route: 065
     Dates: end: 20220224
  8. TRIHEXYPHENIDYL HYDROCHLORIDE [Suspect]
     Active Substance: TRIHEXYPHENIDYL HYDROCHLORIDE
     Indication: Schizoaffective disorder
     Dosage: 25 MG, 1 TABLET BEFORE BED
     Route: 065
     Dates: end: 20220224
  9. TIAPRIDE [Suspect]
     Active Substance: TIAPRIDE
     Indication: Schizoaffective disorder
     Dosage: 2 ML, I.M
     Route: 065
  10. EMOXYPINE SUCCINATE [Suspect]
     Active Substance: EMOXYPINE SUCCINATE
     Indication: Schizoaffective disorder
     Dosage: (24 ML I.V.).
     Route: 065
  11. AMITRIPTYLINE [Suspect]
     Active Substance: AMITRIPTYLINE
     Indication: Schizoaffective disorder
     Route: 065

REACTIONS (17)
  - Cardiac arrest [Recovered/Resolved]
  - Toxic epidermal necrolysis [Recovered/Resolved]
  - Pancreatitis [Recovered/Resolved]
  - Hallucination [Unknown]
  - Unevaluable event [Recovered/Resolved]
  - Hypoproteinaemia [Recovered/Resolved]
  - Electrolyte imbalance [Recovered/Resolved]
  - Pleural effusion [Recovered/Resolved]
  - Atelectasis [Recovered/Resolved]
  - Skin infection [Recovered/Resolved]
  - Sepsis [Recovered/Resolved]
  - Tachycardia [Recovered/Resolved]
  - Anaemia [Recovered/Resolved]
  - Leukopenia [Recovered/Resolved]
  - Atrial fibrillation [Recovered/Resolved]
  - Alanine aminotransferase increased [Recovered/Resolved]
  - Aspartate aminotransferase increased [Recovered/Resolved]

NARRATIVE: CASE EVENT DATE: 20220201
